FAERS Safety Report 9769306 (Version 1)
Quarter: 2013Q4

REPORT INFORMATION
  Report Type: Spontaneous
  Country: US (occurrence: None)
  Receive Date: 20131204
  Receipt Date: 20131204
  Transmission Date: 20140711
  Serious: Yes (Hospitalization)
  Sender: FDA-Public Use
  Company Number: US-IGSA-IG1569

PATIENT
  Age: 54 Year
  Sex: Female

DRUGS (1)
  1. FLEBOGAMMA 5% [Suspect]
     Indication: IMMUNODEFICIENCY COMMON VARIABLE
     Route: 042
     Dates: start: 20060815

REACTIONS (2)
  - Hypokalaemia [None]
  - Cardiac disorder [None]
